FAERS Safety Report 15831893 (Version 1)
Quarter: 2019Q1

REPORT INFORMATION
  Report Type: Spontaneous
  Country: US (occurrence: US)
  Receive Date: 20190116
  Receipt Date: 20190116
  Transmission Date: 20190417
  Serious: Yes (Death, Life-Threatening)
  Sender: FDA-Public Use
  Company Number: US-ENDO PHARMACEUTICALS INC-2019-100046

PATIENT
  Age: 17 Year
  Sex: Female

DRUGS (2)
  1. MECLIZINE HYDROCHLORIDE. [Suspect]
     Active Substance: MECLIZINE HYDROCHLORIDE
     Indication: PRODUCT USED FOR UNKNOWN INDICATION
     Dosage: UNK, UNKNOWN
     Route: 048
  2. BENZONATATE. [Suspect]
     Active Substance: BENZONATATE
     Indication: PRODUCT USED FOR UNKNOWN INDICATION
     Dosage: UNK, UNKNOWN
     Route: 048

REACTIONS (12)
  - Completed suicide [Fatal]
  - Cardio-respiratory arrest [Fatal]
  - Pulse absent [Unknown]
  - Decerebrate posture [Unknown]
  - Coma [Unknown]
  - Apnoea [Unknown]
  - Pupil fixed [Unknown]
  - Liver function test increased [Unknown]
  - Somnolence [Unknown]
  - Tremor [Unknown]
  - Toxicity to various agents [Fatal]
  - Mydriasis [Unknown]

NARRATIVE: CASE EVENT DATE: 2017
